FAERS Safety Report 5325428-7 (Version None)
Quarter: 2007Q2

REPORT INFORMATION
  Report Type: 
  Country: None (occurrence: None)
  Receive Date: 20070515
  Receipt Date: 20070507
  Transmission Date: 20071010
  Serious: Yes (Hospitalization)
  Sender: FDA-Public Use
  Company Number: US-AMGEN-KDL213024

PATIENT
  Sex: Male
  Weight: 63.1 kg

DRUGS (3)
  1. PROCRIT [Suspect]
     Indication: ANAEMIA
     Route: 065
     Dates: start: 20061101
  2. PEG-INTRON [Concomitant]
  3. RIBAVIRIN [Concomitant]

REACTIONS (2)
  - HAEMOGLOBIN INCREASED [None]
  - THROMBOSIS [None]
